FAERS Safety Report 8602810-3 (Version None)
Quarter: 2012Q3

REPORT INFORMATION
  Report Type: 
  Country: None (occurrence: None)
  Receive Date: 20120817
  Receipt Date: 20120807
  Transmission Date: 20120928
  Serious: Yes (Hospitalization, Other)
  Sender: FDA-Public Use
  Company Number: US-JNJFOC-20111011927

PATIENT
  Sex: Female
  Weight: 58.51 kg

DRUGS (5)
  1. LISTERINE WHITENING PLUS RESTORING FLUORIDE RINSE CLEAN MINT [Suspect]
     Indication: BREATH ODOUR
     Dosage: NO MORE THAN A MOUTHFUL ONE TIME AFTER BREAKFAST IN THE AM.
     Route: 048
     Dates: end: 20110301
  2. LISTERINE WHITENING PLUS RESTORING FLUORIDE RINSE CLEAN MINT [Suspect]
     Indication: DENTAL DISORDER PROPHYLAXIS
     Dosage: NO MORE THAN A MOUTHFUL ONE TIME AFTER BREAKFAST IN THE AM.
     Route: 048
     Dates: end: 20110301
  3. LISINOPRIL [Concomitant]
     Indication: PRODUCT USED FOR UNKNOWN INDICATION
     Route: 065
  4. PRADAXA [Concomitant]
     Indication: ANTICOAGULANT THERAPY
     Route: 065
  5. ALL OTHER THERAPEUTIC PRODUCTS [Concomitant]
     Indication: MUSCLE SPASMS
     Route: 065

REACTIONS (7)
  - TOOTHACHE [None]
  - GINGIVAL PAIN [None]
  - HYPOAESTHESIA ORAL [None]
  - ATRIAL FIBRILLATION [None]
  - BLOOD GLUCOSE DECREASED [None]
  - MASTICATION DISORDER [None]
  - LOSS OF CONSCIOUSNESS [None]
